FAERS Safety Report 16297103 (Version 1)
Quarter: 2019Q2

REPORT INFORMATION
  Report Type: Spontaneous
  Country: US (occurrence: US)
  Receive Date: 20190510
  Receipt Date: 20190510
  Transmission Date: 20190711
  Serious: Yes (Other)
  Sender: FDA-Public Use
  Company Number: US-HIKMA PHARMACEUTICALS USA INC.-US-H14001-19-02784

PATIENT
  Sex: Female

DRUGS (4)
  1. DESVENLAFAXINE BRENC [Suspect]
     Active Substance: DESVENLAFAXINE SUCCINATE
     Indication: ANXIETY
  2. DESVENLAFAXINE BRENC [Suspect]
     Active Substance: DESVENLAFAXINE SUCCINATE
     Indication: DEPRESSION
     Route: 048
  3. DESVENLAFAXINE. [Suspect]
     Active Substance: DESVENLAFAXINE
     Indication: DEPRESSION
     Route: 048
     Dates: start: 20190318
  4. DESVENLAFAXINE. [Suspect]
     Active Substance: DESVENLAFAXINE
     Indication: ANXIETY

REACTIONS (15)
  - Dysphonia [Unknown]
  - Swelling [Unknown]
  - Skin exfoliation [Unknown]
  - Nervousness [Unknown]
  - Headache [Unknown]
  - Feeling abnormal [Unknown]
  - Scab [Unknown]
  - Hypersensitivity [Unknown]
  - Eye swelling [Unknown]
  - Nasal congestion [Unknown]
  - Product dose omission [Unknown]
  - Swelling face [Unknown]
  - Eye pruritus [Unknown]
  - Pruritus [Unknown]
  - Withdrawal syndrome [Unknown]

NARRATIVE: CASE EVENT DATE: 20190318
